FAERS Safety Report 20199288 (Version 1)
Quarter: 2021Q4

REPORT INFORMATION
  Report Type: Spontaneous
  Country: US (occurrence: None)
  Receive Date: 20211216
  Receipt Date: 20211216
  Transmission Date: 20220304
  Serious: Yes (Hospitalization)
  Sender: FDA-Public Use
  Company Number: None

PATIENT
  Age: 76 Year
  Sex: Male
  Weight: 182 kg

DRUGS (2)
  1. ENOXAPARIN [Suspect]
     Active Substance: ENOXAPARIN
     Indication: Pulmonary embolism
     Dosage: FREQUENCY : TWICE A DAY;?
     Route: 058
     Dates: start: 20210728
  2. ASPIRIN [Suspect]
     Active Substance: ASPIRIN
     Indication: Peripheral artery stent insertion
     Dosage: FREQUENCY : DAILY;?
     Route: 048
     Dates: start: 20210728, end: 20210810

REACTIONS (3)
  - Haematoma [None]
  - Anaemia [None]
  - Fall [None]

NARRATIVE: CASE EVENT DATE: 20210810
